FAERS Safety Report 5030662-X (Version None)
Quarter: 2006Q2

REPORT INFORMATION
  Report Type: 
  Country: None (occurrence: None)
  Receive Date: 20060615
  Receipt Date: 20060530
  Transmission Date: 20061013
  Serious: Yes (Other)
  Sender: FDA-Public Use
  Company Number: STI-2006-00208

PATIENT
  Age: 16 Year
  Sex: Male

DRUGS (3)
  1. CLINDOXYL GEL (CLINDAMYCIN BENZOYL PEROXIDE) (BENZOYL PEROXIDE W/CLIND [Suspect]
     Indication: ACNE
     Dosage: 1 APP (1 APP, AT NIGHT) TOPICAL
     Route: 061
     Dates: start: 20060529, end: 20060530
  2. DIPROSALIC (BETAMETHASONE DIPROPIONATE) [Concomitant]
  3. DORFLEX (DORFLEX) [Concomitant]

REACTIONS (6)
  - ABDOMINAL PAIN UPPER [None]
  - HALLUCINATION, AUDITORY [None]
  - HALLUCINATION, VISUAL [None]
  - INSOMNIA [None]
  - ORAL INTAKE REDUCED [None]
  - URTICARIA PAPULAR [None]
